FAERS Safety Report 6059180-7 (Version None)
Quarter: 2009Q1

REPORT INFORMATION
  Report Type: 
  Country: None (occurrence: None)
  Receive Date: 20090127
  Receipt Date: 20090127
  Transmission Date: 20090719
  Serious: Yes (Life-Threatening)
  Sender: FDA-Public Use
  Company Number: None

PATIENT
  Sex: Female
  Weight: 77.1115 kg

DRUGS (10)
  1. VASERETIC [Suspect]
     Indication: HYPERTENSION
     Dosage: 1 TABLET 1 TIME DAILY PO
     Route: 048
     Dates: start: 20090124, end: 20090125
  2. PRAVASTATIN [Concomitant]
  3. GLYBURIDE [Concomitant]
  4. ACTOS [Concomitant]
  5. JANUVIA [Concomitant]
  6. POTASSIUM CL [Concomitant]
  7. LYRICA [Concomitant]
  8. MELOXICAM [Concomitant]
  9. HYDROCHLOROTHIAZIDE [Concomitant]
  10. . [Concomitant]

REACTIONS (1)
  - DRUG HYPERSENSITIVITY [None]
